FAERS Safety Report 25656794 (Version 2)
Quarter: 2025Q3

REPORT INFORMATION
  Report Type: Report from Study
  Country: US (occurrence: US)
  Receive Date: 20250807
  Receipt Date: 20250815
  Transmission Date: 20251020
  Serious: Yes (Hospitalization, Other)
  Sender: MALLINCKRODT
  Company Number: US-MALLINCKRODT-MNK202504749

PATIENT
  Sex: Female

DRUGS (2)
  1. CORTICOTROPIN [Suspect]
     Active Substance: CORTICOTROPIN
     Indication: Multiple sclerosis
  2. CORTICOTROPIN [Suspect]
     Active Substance: CORTICOTROPIN
     Dosage: 80 UNITS
     Route: 058

REACTIONS (11)
  - Abdominal discomfort [Unknown]
  - Multiple sclerosis relapse [Unknown]
  - Immune system disorder [Unknown]
  - Red blood cell count decreased [Unknown]
  - Therapeutic procedure [Unknown]
  - Impaired gastric emptying [Unknown]
  - Condition aggravated [Unknown]
  - White blood cell count decreased [Unknown]
  - Platelet count decreased [Not Recovered/Not Resolved]
  - Blood glucose increased [Unknown]
  - Insomnia [Unknown]
